FAERS Safety Report 5231021-7 (Version None)
Quarter: 2007Q1

REPORT INFORMATION
  Report Type: 
  Country: None (occurrence: None)
  Receive Date: 20070206
  Receipt Date: 20070131
  Transmission Date: 20070707
  Serious: Yes (Other)
  Sender: FDA-Public Use
  Company Number: GB-GLAXOSMITHKLINE-B0361695A

PATIENT
  Sex: Female

DRUGS (2)
  1. PAROXETINE HYDROCHLORIDE [Suspect]
     Route: 065
  2. LOFEPRAMINE [Suspect]
     Route: 065

REACTIONS (9)
  - DEPRESSION [None]
  - DISINHIBITION [None]
  - DRUG WITHDRAWAL SYNDROME [None]
  - HYPOMANIA [None]
  - IRRITABILITY [None]
  - MALAISE [None]
  - NIGHT SWEATS [None]
  - POOR QUALITY SLEEP [None]
  - SUICIDAL IDEATION [None]
